FAERS Safety Report 22953389 (Version 4)
Quarter: 2023Q4

REPORT INFORMATION
  Report Type: Spontaneous
  Country: US (occurrence: US)
  Receive Date: 20230918
  Receipt Date: 20231009
  Transmission Date: 20240109
  Serious: No
  Sender: FDA-Public Use
  Company Number: US-SANOFI-01766706

PATIENT
  Age: 61 Year
  Sex: Male

DRUGS (1)
  1. LANTUS SOLOSTAR [Suspect]
     Active Substance: INSULIN GLARGINE
     Indication: Type 1 diabetes mellitus
     Dosage: 12 UNITS AM; 8-10 UNITS PM BID
     Route: 058

REACTIONS (3)
  - Blood glucose decreased [Unknown]
  - Device issue [Unknown]
  - Inappropriate schedule of product administration [Unknown]
